FAERS Safety Report 23858394 (Version 3)
Quarter: 2024Q3

REPORT INFORMATION
  Report Type: Report from Study
  Country: AU (occurrence: AU)
  Receive Date: 20240515
  Receipt Date: 20240831
  Transmission Date: 20241017
  Serious: Yes (Hospitalization, Other)
  Sender: NOVARTIS
  Company Number: AU-002147023-NVSC2024AU102327

PATIENT
  Sex: Male

DRUGS (2)
  1. KESIMPTA [Suspect]
     Active Substance: OFATUMUMAB
     Indication: Relapsing-remitting multiple sclerosis
     Dosage: 20 MG, QMO
     Route: 058
     Dates: start: 20221112
  2. KESIMPTA [Suspect]
     Active Substance: OFATUMUMAB
     Dosage: 20 MG, QMO (EVERY 28 DAYS)
     Route: 058

REACTIONS (14)
  - COVID-19 pneumonia [Recovering/Resolving]
  - Asthma [Unknown]
  - Pneumonia [Unknown]
  - Lower respiratory tract infection [Unknown]
  - Multiple sclerosis relapse [Unknown]
  - Dysstasia [Recovering/Resolving]
  - Speech disorder [Recovering/Resolving]
  - Gait inability [Recovering/Resolving]
  - Paraesthesia [Unknown]
  - Pain in extremity [Unknown]
  - Optic neuritis [Unknown]
  - Eye pain [Unknown]
  - Vision blurred [Unknown]
  - Infection [Recovering/Resolving]
